FAERS Safety Report 4327735-3 (Version None)
Quarter: 2004Q1

REPORT INFORMATION
  Report Type: 
  Country: None (occurrence: None)
  Receive Date: 20040325
  Receipt Date: 20040318
  Transmission Date: 20041129
  Serious: Yes (Death)
  Sender: FDA-Public Use
  Company Number: 02P-163-0201718-00

PATIENT
  Age: 40 Year
  Sex: Male

DRUGS (1)
  1. KALETRA [Suspect]

REACTIONS (2)
  - COMPLETED SUICIDE [None]
  - PSYCHOTIC DISORDER [None]
